FAERS Safety Report 10582172 (Version 5)
Quarter: 2014Q4

REPORT INFORMATION
  Report Type: Report from Study
  Country: FR (occurrence: FR)
  Receive Date: 20141113
  Receipt Date: 20141215
  Transmission Date: 20150529
  Serious: Yes (Hospitalization, Other)
  Sender: FDA-Public Use
  Company Number: FR-JNJFOC-20141000312

PATIENT
  Age: 74 Year
  Sex: Male
  Weight: 72 kg

DRUGS (5)
  1. IBRUTINIB [Suspect]
     Active Substance: IBRUTINIB
     Indication: CHRONIC LYMPHOCYTIC LEUKAEMIA
     Route: 048
     Dates: start: 20140901
  2. SPECIAFOLDINE [Concomitant]
     Active Substance: FOLIC ACID
     Indication: HAEMOLYTIC ANAEMIA
  3. SOLU-MEDROL [Concomitant]
     Active Substance: METHYLPREDNISOLONE SODIUM SUCCINATE
     Indication: HAEMOLYTIC ANAEMIA
  4. CORTANCYL [Concomitant]
     Active Substance: PREDNISONE
     Indication: HAEMOLYTIC ANAEMIA
     Route: 048
     Dates: start: 20140905, end: 20141007
  5. EXJADE [Concomitant]
     Active Substance: DEFERASIROX
     Indication: IRON OVERLOAD
     Route: 048

REACTIONS (8)
  - Atrial fibrillation [Not Recovered/Not Resolved]
  - Neutrophil count decreased [Unknown]
  - Lobar pneumonia [Unknown]
  - Skin ulcer [Unknown]
  - Lymphocytosis [Unknown]
  - Blood lactate dehydrogenase increased [Unknown]
  - Haemoglobin decreased [Recovering/Resolving]
  - White blood cell count increased [Unknown]

NARRATIVE: CASE EVENT DATE: 201410
